FAERS Safety Report 19875699 (Version 2)
Quarter: 2021Q3

REPORT INFORMATION
  Report Type: Spontaneous
  Country: US (occurrence: US)
  Receive Date: 20210924
  Receipt Date: 20210930
  Transmission Date: 20211014
  Serious: Yes (Hospitalization)
  Sender: FDA-Public Use
  Company Number: US-DRREDDYS-SPO/USA/21/0140471

PATIENT
  Age: 33 Year
  Sex: Male
  Weight: 107 kg

DRUGS (15)
  1. MILRINONE [Concomitant]
     Active Substance: MILRINONE
     Indication: HYPOTENSION
  2. VASOPRESSIN. [Concomitant]
     Active Substance: VASOPRESSIN
     Indication: HYPOTENSION
  3. AZITHROMYCIN ANHYDROUS. [Concomitant]
     Active Substance: AZITHROMYCIN ANHYDROUS
     Indication: PNEUMONIA
  4. VANCOMYCIN [Concomitant]
     Active Substance: VANCOMYCIN
     Indication: PNEUMONIA
  5. SODIUM CHLORIDE. [Concomitant]
     Active Substance: SODIUM CHLORIDE
     Indication: PRODUCT USED FOR UNKNOWN INDICATION
     Route: 042
  6. CEFTRIAXONE. [Concomitant]
     Active Substance: CEFTRIAXONE
     Indication: ENDOCARDITIS
     Route: 042
  7. NOREPINEPHRINE. [Concomitant]
     Active Substance: NOREPINEPHRINE
     Indication: HYPOTENSION
     Dosage: INFUSION
  8. AMPICILLIN [Concomitant]
     Active Substance: AMPICILLIN
     Indication: ENDOCARDITIS ENTEROCOCCAL
  9. DEXTROSE. [Concomitant]
     Active Substance: DEXTROSE
     Indication: PRODUCT USED FOR UNKNOWN INDICATION
     Dosage: HEPARIN 50 UNITS/ML IN 5 PERCENT DEXTROSE IN WATER (D5W)
  10. HEPARIN SODIUM. [Suspect]
     Active Substance: HEPARIN SODIUM
     Indication: ANTICOAGULANT THERAPY
     Dosage: 50 UNITS/ML (INTRAVENOUS HEPARIN 50 UNITS/ML IN 0.45 PERCENT SODIUM CHLORIDE) DAYS 5?15 OF HOSPITALI
     Route: 042
  11. OXYGEN. [Concomitant]
     Active Substance: OXYGEN
     Indication: PNEUMONIA
     Route: 045
  12. CEFTRIAXONE. [Concomitant]
     Active Substance: CEFTRIAXONE
     Indication: ENTEROCOCCAL INFECTION
     Route: 042
  13. CEFTRIAXONE. [Concomitant]
     Active Substance: CEFTRIAXONE
     Indication: PNEUMONIA
  14. AMPICILLIN [Concomitant]
     Active Substance: AMPICILLIN
     Indication: ENTEROCOCCAL INFECTION
     Route: 042
  15. EPINEPHRINE. [Concomitant]
     Active Substance: EPINEPHRINE
     Indication: HYPOTENSION
     Dosage: INFUSION

REACTIONS (1)
  - Heparin-induced thrombocytopenia [Recovered/Resolved]
